FAERS Safety Report 6480375-2 (Version None)
Quarter: 2009Q4

REPORT INFORMATION
  Report Type: 
  Country: None (occurrence: None)
  Receive Date: 20091202
  Receipt Date: 20091118
  Transmission Date: 20100525
  Serious: Yes (Other)
  Sender: FDA-Public Use
  Company Number: 230461M09USA

PATIENT
  Age: 49 Year
  Sex: Female

DRUGS (6)
  1. REBIF [Suspect]
     Indication: MULTIPLE SCLEROSIS
     Dosage: 44 MCG, 3 IN 1 WEEKS, SUBCUTANEOUS; 22 MCG,  SUBCUTANEOUS
     Route: 058
     Dates: start: 20030101, end: 20090501
  2. REBIF [Suspect]
     Indication: MULTIPLE SCLEROSIS
     Dosage: 44 MCG, 3 IN 1 WEEKS, SUBCUTANEOUS; 22 MCG,  SUBCUTANEOUS
     Route: 058
     Dates: start: 20090501, end: 20090501
  3. AVANDIA [Suspect]
  4. AMARYL [Suspect]
  5. ZOCOR [Suspect]
  6. METFORMIN HCL [Concomitant]

REACTIONS (3)
  - HEPATIC NECROSIS [None]
  - HEPATOTOXICITY [None]
  - PYREXIA [None]
